FAERS Safety Report 4275171-0 (Version None)
Quarter: 2004Q1

REPORT INFORMATION
  Report Type: 
  Country: None (occurrence: None)
  Receive Date: 20040116
  Receipt Date: 20040113
  Transmission Date: 20041129
  Serious: Yes (Hospitalization, Other)
  Sender: FDA-Public Use
  Company Number: 2003184378US

PATIENT
  Age: 41 Year
  Sex: Female

DRUGS (2)
  1. CELEBREX [Suspect]
     Indication: SPINAL DISORDER
     Dosage: BID
     Dates: start: 20031001, end: 20031031
  2. FLEXERIL [Concomitant]

REACTIONS (5)
  - ACUTE MYELOID LEUKAEMIA [None]
  - BONE MARROW DEPRESSION [None]
  - CONTUSION [None]
  - HAEMATEMESIS [None]
  - PLATELET COUNT DECREASED [None]
